FAERS Safety Report 8502082-4 (Version None)
Quarter: 2012Q3

REPORT INFORMATION
  Report Type: 
  Country: None (occurrence: None)
  Receive Date: 20120711
  Receipt Date: 20120625
  Transmission Date: 20120928
  Serious: Yes (Other)
  Sender: FDA-Public Use
  Company Number: CA-JNJFOC-20120611287

PATIENT
  Sex: Female
  Weight: 41 kg

DRUGS (2)
  1. REMICADE [Suspect]
     Indication: RHEUMATOID ARTHRITIS
     Route: 042
     Dates: start: 20060418
  2. CLARITIN [Concomitant]
     Dosage: PRN
     Route: 065

REACTIONS (1)
  - URINARY TRACT INFECTION [None]
